FAERS Safety Report 12334863 (Version 19)
Quarter: 2020Q2

REPORT INFORMATION
  Report Type: Spontaneous
  Country: US (occurrence: US)
  Receive Date: 20160504
  Receipt Date: 20200526
  Transmission Date: 20200713
  Serious: Yes (Other)
  Sender: FDA-Public Use
  Company Number: US-PFIZER INC-2016240298

PATIENT
  Age: 62 Year
  Sex: Male
  Weight: 109 kg

DRUGS (2)
  1. LYRICA [Suspect]
     Active Substance: PREGABALIN
     Dosage: 50 MG, DAILY (ONE A DAY)
  2. LYRICA [Suspect]
     Active Substance: PREGABALIN
     Indication: NEUROPATHY PERIPHERAL
     Dosage: 50 MG, 3X/DAY
     Route: 048

REACTIONS (6)
  - Cerebral vasoconstriction [Unknown]
  - Confusional state [Unknown]
  - Mental disorder [Unknown]
  - Throat irritation [Unknown]
  - Sensitivity to weather change [Unknown]
  - Bronchitis [Unknown]
